FAERS Safety Report 9423703 (Version 1)
Quarter: 2013Q3

REPORT INFORMATION
  Report Type: Spontaneous
  Country: GB (occurrence: GB)
  Receive Date: 20130727
  Receipt Date: 20130727
  Transmission Date: 20140515
  Serious: Yes (Life-Threatening)
  Sender: FDA-Public Use
  Company Number: PHHY2013GB079457

PATIENT
  Age: 9 Month
  Sex: Male
  Weight: 9 kg

DRUGS (2)
  1. CODEINE PHOSPHATE [Suspect]
     Indication: ABDOMINAL PAIN
     Dosage: 10 MG
     Route: 048
     Dates: start: 20130711, end: 20130712
  2. PARACETAMOL [Concomitant]

REACTIONS (2)
  - Respiratory depression [Not Recovered/Not Resolved]
  - Medication error [Unknown]
